FAERS Safety Report 8764948 (Version 2)
Quarter: 2012Q4

REPORT INFORMATION
  Report Type: 
  Country: DE (occurrence: DE)
  Receive Date: 20120903
  Receipt Date: 20120920
  Transmission Date: 20130627
  Serious: Yes (Other)
  Sender: FDA-Public Use
  Company Number: DE-BRISTOL-MYERS SQUIBB COMPANY-16915332

PATIENT
  Age: 75 Year
  Sex: Male

DRUGS (2)
  1. COUMADIN [Suspect]
     Dosage: 5 mg tablets. 1 x 5 mg and the next day 2.5 mg, by custom Mondays and Tuesdays 5 mg
     Dates: start: 199403
  2. MITOMYCIN [Suspect]
     Dosage: Medac Discontinued in April after 11 installations

REACTIONS (1)
  - Hypersensitivity [Not Recovered/Not Resolved]
